FAERS Safety Report 21377097 (Version 2)
Quarter: 2022Q4

REPORT INFORMATION
  Report Type: Spontaneous
  Country: US (occurrence: US)
  Receive Date: 20220926
  Receipt Date: 20221008
  Transmission Date: 20230113
  Serious: Yes (Death, Life-Threatening, Hospitalization)
  Sender: FDA-Public Use
  Company Number: US-TEVA-2022-US-2076345

PATIENT
  Age: 8 Month
  Sex: Male

DRUGS (38)
  1. AZITHROMYCIN [Suspect]
     Active Substance: AZITHROMYCIN
     Indication: Corynebacterium infection
     Route: 065
  2. AZITHROMYCIN [Suspect]
     Active Substance: AZITHROMYCIN
     Indication: Lower respiratory tract infection
  3. AZITHROMYCIN [Suspect]
     Active Substance: AZITHROMYCIN
     Indication: Staphylococcal infection
  4. LINEZOLID [Interacting]
     Active Substance: LINEZOLID
     Indication: Staphylococcal infection
     Dosage: 30 MG/KG DAILY; PER DOSE
     Route: 050
  5. LINEZOLID [Interacting]
     Active Substance: LINEZOLID
     Indication: Corynebacterium infection
     Dosage: 1200 MILLIGRAM DAILY;
     Route: 050
  6. LINEZOLID [Interacting]
     Active Substance: LINEZOLID
     Indication: Lower respiratory tract infection
  7. VANCOMYCIN [Suspect]
     Active Substance: VANCOMYCIN
     Indication: Lower respiratory tract infection
     Route: 065
  8. VANCOMYCIN [Suspect]
     Active Substance: VANCOMYCIN
     Indication: Corynebacterium infection
  9. VANCOMYCIN [Suspect]
     Active Substance: VANCOMYCIN
     Indication: Staphylococcal infection
  10. METHADONE [Interacting]
     Active Substance: METHADONE HYDROCHLORIDE
     Indication: Product used for unknown indication
     Dosage: 40 MILLIGRAM DAILY; 0.75 MG/KG
     Route: 050
  11. CEFEPIME [Suspect]
     Active Substance: CEFEPIME HYDROCHLORIDE
     Indication: Lower respiratory tract infection
     Route: 065
  12. CEFEPIME [Suspect]
     Active Substance: CEFEPIME HYDROCHLORIDE
     Indication: Corynebacterium infection
  13. CEFEPIME [Suspect]
     Active Substance: CEFEPIME HYDROCHLORIDE
     Indication: Staphylococcal infection
  14. NAFCILLIN [Suspect]
     Active Substance: NAFCILLIN SODIUM
     Indication: Lower respiratory tract infection
     Route: 065
  15. NAFCILLIN [Suspect]
     Active Substance: NAFCILLIN SODIUM
     Indication: Corynebacterium infection
  16. NAFCILLIN [Suspect]
     Active Substance: NAFCILLIN SODIUM
     Indication: Staphylococcal infection
  17. MORPHINE [Interacting]
     Active Substance: MORPHINE
     Indication: Pain
     Route: 041
  18. MORPHINE [Interacting]
     Active Substance: MORPHINE
     Indication: Agitation
     Dosage: 60 MICROG/KG/H
     Route: 041
  19. MORPHINE [Interacting]
     Active Substance: MORPHINE
     Dosage: 130 MICROG/KG/H
     Route: 041
  20. EPINEPHRINE [Suspect]
     Active Substance: EPINEPHRINE
     Indication: Hypotension
     Route: 050
  21. EPINEPHRINE [Suspect]
     Active Substance: EPINEPHRINE
     Indication: Shock
  22. FLUCONAZOLE [Concomitant]
     Active Substance: FLUCONAZOLE
     Indication: Antifungal treatment
     Route: 065
  23. BOSENTAN [Concomitant]
     Active Substance: BOSENTAN
     Indication: Product used for unknown indication
     Route: 065
  24. CHLOROTHIAZIDE [Concomitant]
     Active Substance: CHLOROTHIAZIDE
     Indication: Product used for unknown indication
     Route: 065
  25. CHOLECALCIFEROL [Concomitant]
     Active Substance: CHOLECALCIFEROL
     Indication: Product used for unknown indication
     Route: 065
  26. FUROSEMIDE [Concomitant]
     Active Substance: FUROSEMIDE
     Indication: Product used for unknown indication
     Route: 065
  27. LANSOPRAZOLE [Concomitant]
     Active Substance: LANSOPRAZOLE
     Indication: Product used for unknown indication
     Route: 065
  28. LORAZEPAM [Concomitant]
     Active Substance: LORAZEPAM
     Indication: Product used for unknown indication
     Route: 065
  29. MELATONIN [Concomitant]
     Active Substance: MELATONIN
     Indication: Product used for unknown indication
     Route: 065
  30. SPIRONOLACTONE [Concomitant]
     Active Substance: SPIRONOLACTONE
     Indication: Product used for unknown indication
     Route: 065
  31. IRON [Concomitant]
     Active Substance: IRON
     Indication: Supplementation therapy
     Route: 065
  32. ZINC [Concomitant]
     Active Substance: ZINC
     Indication: Supplementation therapy
     Route: 065
  33. DEXMEDETOMIDINE [Concomitant]
     Active Substance: DEXMEDETOMIDINE
     Indication: Product used for unknown indication
     Route: 065
  34. NOREPINEPHRINE [Concomitant]
     Active Substance: NOREPINEPHRINE
     Indication: Shock
     Dosage: 0-0.1 MICROG/KG/MIN
     Route: 050
  35. NOREPINEPHRINE [Concomitant]
     Active Substance: NOREPINEPHRINE
     Indication: Hypotension
  36. VASOPRESSIN [Concomitant]
     Active Substance: VASOPRESSIN
     Indication: Shock
     Dosage: INFUSION RATES RANGING FROM 0-0.0008 MICROG/KG/MIN
     Route: 050
  37. VASOPRESSIN [Concomitant]
     Active Substance: VASOPRESSIN
     Indication: Hypotension
  38. HYDROCORTISONE [Concomitant]
     Active Substance: HYDROCORTISONE
     Indication: Evidence based treatment
     Dosage: 400 MG/M2 DAILY;

REACTIONS (11)
  - Serotonin syndrome [Fatal]
  - Drug interaction [Fatal]
  - Drug ineffective [Unknown]
  - Myoclonic epilepsy [Unknown]
  - Bradycardia [Unknown]
  - Shock [Unknown]
  - Hypotension [Unknown]
  - Mental status changes [Unknown]
  - Haemodynamic instability [Recovering/Resolving]
  - Hypoxia [Unknown]
  - Cardiac arrest [Fatal]
